FAERS Safety Report 15647269 (Version 1)
Quarter: 2018Q4

REPORT INFORMATION
  Report Type: Spontaneous
  Country: FR (occurrence: FR)
  Receive Date: 20181122
  Receipt Date: 20181122
  Transmission Date: 20190205
  Serious: Yes (Death, Other)
  Sender: FDA-Public Use
  Company Number: FR-AUROBINDO-AUR-APL-2018-056387

PATIENT
  Age: 68 Year
  Sex: Female
  Weight: 45 kg

DRUGS (4)
  1. KYPROLIS [Suspect]
     Active Substance: CARFILZOMIB
     Indication: PLASMA CELL MYELOMA
     Dosage: 28 MILLIGRAM (J1, J2, J8 ET J9 4 PERF EN TOUT)
     Route: 042
     Dates: start: 20181004, end: 20181012
  2. ROCEPHINE [Suspect]
     Active Substance: CEFTRIAXONE SODIUM
     Indication: LUNG DISORDER
     Dosage: 1 GRAM, DAILY
     Route: 042
     Dates: start: 20181024
  3. PREDNISONE. [Suspect]
     Active Substance: PREDNISONE
     Indication: PLASMA CELL MYELOMA
     Dosage: 60 MILLIGRAM, DAILY
     Route: 048
     Dates: start: 20181004, end: 20181012
  4. TAZOCILLINE [Suspect]
     Active Substance: PIPERACILLIN SODIUM\TAZOBACTAM SODIUM
     Indication: LUNG DISORDER
     Dosage: 16 GRAM, DAILY
     Route: 042
     Dates: start: 20181019, end: 20181024

REACTIONS (1)
  - Hepatitis fulminant [Fatal]

NARRATIVE: CASE EVENT DATE: 20181027
